FAERS Safety Report 6244025-2 (Version None)
Quarter: 2009Q2

REPORT INFORMATION
  Report Type: 
  Country: None (occurrence: None)
  Receive Date: 20090623
  Receipt Date: 20090615
  Transmission Date: 20091009
  Serious: Yes (Other)
  Sender: FDA-Public Use
  Company Number: 2009007344

PATIENT
  Sex: Female

DRUGS (2)
  1. TREANDA [Suspect]
     Dosage: (375 MG/M2), INTRAVENOUS (NOT OTHERWISE SPECIFIED)
  2. RITUXAN [Suspect]
     Dosage: INTRAVENOUS (NOT OTHERWISE)
     Route: 042

REACTIONS (2)
  - FIBRIN D DIMER INCREASED [None]
  - THROMBOCYTOPENIA [None]
